FAERS Safety Report 7606854-X (Version None)
Quarter: 2011Q3

REPORT INFORMATION
  Report Type: 
  Country: None (occurrence: None)
  Receive Date: 20110713
  Receipt Date: 20110616
  Transmission Date: 20111222
  Serious: Yes (Hospitalization)
  Sender: FDA-Public Use
  Company Number: US-GLAXOSMITHKLINE-A0936367A

PATIENT
  Sex: Female
  Weight: 89.8 kg

DRUGS (12)
  1. GLUCOTROL XL [Concomitant]
  2. ASPIRIN [Concomitant]
  3. AVANDIA [Suspect]
     Indication: DIABETES MELLITUS
     Route: 048
     Dates: end: 20040901
  4. LASIX [Concomitant]
  5. LIPITOR [Concomitant]
  6. PROZAC [Concomitant]
  7. PLAVIX [Concomitant]
  8. CAPTOPRIL [Concomitant]
  9. DEPAKOTE ER [Concomitant]
  10. RANITIDINE [Concomitant]
  11. CLONIDINE [Concomitant]
  12. AVANDAMET [Suspect]
     Indication: DIABETES MELLITUS
     Route: 048
     Dates: start: 20040901

REACTIONS (2)
  - MYOCARDIAL INFARCTION [None]
  - CORONARY ARTERY DISEASE [None]
